FAERS Safety Report 24763233 (Version 1)
Quarter: 2024Q4

REPORT INFORMATION
  Report Type: Spontaneous
  Country: US (occurrence: US)
  Receive Date: 20241222
  Receipt Date: 20241222
  Transmission Date: 20250115
  Serious: Yes (Other)
  Sender: CIPLA
  Company Number: US-MLMSERVICE-20241209-PI285096-00040-1

PATIENT

DRUGS (2)
  1. ALENDRONATE [Suspect]
     Active Substance: ALENDRONATE SODIUM
     Indication: Osteoporosis
     Dosage: UNK
     Route: 065
  2. TENOFOVIR [Suspect]
     Active Substance: TENOFOVIR
     Indication: HIV infection
     Dosage: UNK, (15 YEARS)
     Route: 065

REACTIONS (5)
  - Osteoporosis [Unknown]
  - Lumbar vertebral fracture [Unknown]
  - Fractured sacrum [Unknown]
  - Wrist fracture [Unknown]
  - Gastrooesophageal reflux disease [Unknown]
